FAERS Safety Report 5212668-0 (Version None)
Quarter: 2007Q1

REPORT INFORMATION
  Report Type: 
  Country: None (occurrence: None)
  Receive Date: 20070118
  Receipt Date: 20070110
  Transmission Date: 20070707
  Serious: Yes (Life-Threatening, Hospitalization)
  Sender: FDA-Public Use
  Company Number: JP-PFIZER INC-2007003558

PATIENT
  Age: 81 Year
  Sex: Female

DRUGS (3)
  1. ALDACTAZIDE-A [Suspect]
     Indication: DIABETIC NEPHROPATHY
     Route: 048
  2. ACE INHIBITOR NOS [Suspect]
     Route: 048
  3. ANGIOTENSIN II ANTAGONISTS [Suspect]

REACTIONS (3)
  - CARDIAC ARREST [None]
  - HYPERKALAEMIA [None]
  - METABOLIC ACIDOSIS [None]
